FAERS Safety Report 5368848-7 (Version None)
Quarter: 2007Q2

REPORT INFORMATION
  Report Type: 
  Country: None (occurrence: None)
  Receive Date: 20070621
  Receipt Date: 20070621
  Transmission Date: 20071010
  Serious: Yes (Hospitalization, Other)
  Sender: FDA-Public Use
  Company Number: None

PATIENT
  Sex: Female
  Weight: 90 kg

DRUGS (1)
  1. LOVENOX [Suspect]
     Indication: ATRIAL FIBRILLATION
     Dosage: 90MG Q12H SQ
     Route: 058
     Dates: start: 20070223, end: 20070227

REACTIONS (2)
  - INJECTION SITE HAEMATOMA [None]
  - MUSCLE HAEMORRHAGE [None]
